FAERS Safety Report 23833659 (Version 1)
Quarter: 2024Q2

REPORT INFORMATION
  Report Type: Spontaneous
  Country: PL (occurrence: PL)
  Receive Date: 20240508
  Receipt Date: 20240508
  Transmission Date: 20240716
  Serious: Yes (Hospitalization)
  Sender: FDA-Public Use
  Company Number: None

PATIENT
  Age: 65 Year
  Sex: Male

DRUGS (1)
  1. IMIPENEM AND CILASTATIN [Suspect]
     Active Substance: CILASTATIN SODIUM\IMIPENEM
     Indication: Pyrexia
     Dosage: 500 MILLIGRAM, Q12H
     Route: 042
     Dates: start: 20200728, end: 20200806

REACTIONS (1)
  - Abnormal faeces [Recovered/Resolved]

NARRATIVE: CASE EVENT DATE: 20200806
